FAERS Safety Report 25070400 (Version 1)
Quarter: 2025Q1

REPORT INFORMATION
  Report Type: Report from Study
  Country: DE (occurrence: DE)
  Receive Date: 20250312
  Receipt Date: 20250312
  Transmission Date: 20250409
  Serious: Yes (Hospitalization)
  Sender: ABBVIE
  Company Number: DE-ABBVIE-6174558

PATIENT
  Age: 45 Year
  Sex: Female

DRUGS (1)
  1. SKYRIZI [Suspect]
     Active Substance: RISANKIZUMAB-RZAA
     Indication: Psoriasis
     Route: 058
     Dates: start: 20220922

REACTIONS (2)
  - Breast mass [Recovered/Resolved with Sequelae]
  - Mammoplasty [Recovered/Resolved with Sequelae]

NARRATIVE: CASE EVENT DATE: 20231207
